FAERS Safety Report 7129105-1 (Version None)
Quarter: 2010Q4

REPORT INFORMATION
  Report Type: 
  Country: None (occurrence: None)
  Receive Date: 20101116
  Receipt Date: 20101105
  Transmission Date: 20110411
  Serious: Yes (Other)
  Sender: FDA-Public Use
  Company Number: 20109606

PATIENT
  Sex: Male

DRUGS (1)
  1. LIORESAL [Suspect]
     Indication: MUSCLE SPASTICITY
     Dosage: 118 MCG, DAILY, INTRATHECAL
     Route: 037

REACTIONS (2)
  - DEVICE DISLOCATION [None]
  - INTRACRANIAL HYPOTENSION [None]
